FAERS Safety Report 5262868-9 (Version None)
Quarter: 2007Q1

REPORT INFORMATION
  Report Type: 
  Country: None (occurrence: None)
  Receive Date: 20070312
  Receipt Date: 20070215
  Transmission Date: 20070707
  Serious: Yes (Other)
  Sender: FDA-Public Use
  Company Number: 200710677EU

PATIENT
  Age: 58 Year
  Sex: Female

DRUGS (5)
  1. NICORETTE [Suspect]
     Route: 002
  2. NICORETTE [Suspect]
     Route: 062
     Dates: start: 20061001
  3. NICORETTE [Suspect]
     Route: 055
  4. UNKNOWN MEDICATION [Concomitant]
     Route: 065
  5. UNKNOWN MEDICATION [Concomitant]
     Indication: ARTHRITIS
     Route: 065

REACTIONS (5)
  - DEPENDENCE [None]
  - INCORRECT DRUG ADMINISTRATION DURATION [None]
  - MOUTH ULCERATION [None]
  - OVERDOSE [None]
  - TREATMENT NONCOMPLIANCE [None]
